FAERS Safety Report 19835034 (Version 1)
Quarter: 2021Q3

REPORT INFORMATION
  Report Type: Spontaneous
  Country: US (occurrence: US)
  Receive Date: 20210915
  Receipt Date: 20210915
  Transmission Date: 20211014
  Serious: No
  Sender: FDA-Public Use
  Company Number: US-009507513-2109USA002740

PATIENT
  Sex: Female

DRUGS (8)
  1. PREDNISONE. [Suspect]
     Active Substance: PREDNISONE
     Dosage: 1 WEEK OF 5MG
     Dates: start: 20210825, end: 20210831
  2. PREDNISONE. [Suspect]
     Active Substance: PREDNISONE
     Dosage: 1 WEEK OF 40 MG
     Dates: start: 20210728, end: 20210803
  3. PREDNISONE. [Suspect]
     Active Substance: PREDNISONE
     Dosage: 1 WEEK OF 10 MG
     Dates: start: 20210818, end: 20210824
  4. PREDNISONE. [Suspect]
     Active Substance: PREDNISONE
     Dosage: 4 MG FOR TWO WEEKS
     Dates: start: 20210715, end: 20210728
  5. PREDNISONE. [Suspect]
     Active Substance: PREDNISONE
     Dosage: 1 WEEK OF 20 MG
     Dates: start: 20210811, end: 20210817
  6. KEYTRUDA [Suspect]
     Active Substance: PEMBROLIZUMAB
     Indication: NON-SMALL CELL LUNG CANCER
     Dosage: UNK, EVERY 3 WEEKS
     Route: 042
     Dates: start: 2021
  7. PREDNISONE. [Suspect]
     Active Substance: PREDNISONE
     Dosage: 1 WEEK OF 30 MG
     Dates: start: 20210804, end: 20210810
  8. PREDNISONE. [Suspect]
     Active Substance: PREDNISONE
     Dosage: 5 MG EVERY OTHER DAY
     Dates: start: 20210901, end: 20210902

REACTIONS (3)
  - Immune-mediated dermatitis [Not Recovered/Not Resolved]
  - Pruritus [Not Recovered/Not Resolved]
  - Drug ineffective [Unknown]

NARRATIVE: CASE EVENT DATE: 2021
